FAERS Safety Report 5042410-8 (Version None)
Quarter: 2006Q2

REPORT INFORMATION
  Report Type: 
  Country: None (occurrence: None)
  Receive Date: 20060601
  Receipt Date: 20060331
  Transmission Date: 20061013
  Serious: No
  Sender: FDA-Public Use
  Company Number: 2006PV011336

PATIENT
  Age: 59 Year
  Sex: Female
  Weight: 133.8111 kg

DRUGS (5)
  1. BYETTA [Suspect]
     Indication: DIABETES MELLITUS NON-INSULIN-DEPENDENT
     Dosage: 5 MCG; BID; SC
     Route: 058
     Dates: start: 20060331
  2. GLIPIZIDE [Concomitant]
  3. ATACAND [Concomitant]
  4. CRESTOR [Concomitant]
  5. FOLIC ACID [Concomitant]

REACTIONS (4)
  - HEADACHE [None]
  - INJECTION SITE ERYTHEMA [None]
  - INJECTION SITE HAEMORRHAGE [None]
  - SOMNOLENCE [None]
